FAERS Safety Report 7229367 (Version 2)
Quarter: 2014Q1

REPORT INFORMATION
  Report Type: Spontaneous
  Country: US (occurrence: US)
  Receive Date: 20091223
  Receipt Date: 20140117
  Transmission Date: 20141002
  Serious: Yes (Other)
  Sender: FDA-Public Use
  Company Number: US-JNJFOC-20091204876

PATIENT
  Sex: Female

DRUGS (5)
  1. RISPERDAL [Suspect]
     Indication: DEPRESSION
     Route: 048
  2. RISPERDAL [Suspect]
     Indication: DEPRESSION
     Route: 048
  3. RISPERDAL [Suspect]
     Indication: DEPRESSION
     Route: 048
     Dates: start: 2007
  4. RISPERDAL CONSTA [Suspect]
     Indication: DEPRESSION
     Route: 030
     Dates: start: 2007, end: 2007
  5. GENERIC UNSPECIFIED RISPERIDONE [Suspect]
     Indication: DEPRESSION
     Route: 048

REACTIONS (16)
  - Sensory loss [Recovered/Resolved]
  - Transient ischaemic attack [Recovered/Resolved]
  - Renal cyst [Unknown]
  - Faecal incontinence [Recovered/Resolved]
  - Drug ineffective [Unknown]
  - Dyspepsia [Not Recovered/Not Resolved]
  - Sensory disturbance [Recovered/Resolved]
  - Abdominal pain lower [Unknown]
  - Back pain [Unknown]
  - Hypoaesthesia [Unknown]
  - Diarrhoea [Unknown]
  - Pruritus [Unknown]
  - Irritable bowel syndrome [Unknown]
  - Nausea [Unknown]
  - Pelvic pain [Unknown]
  - Constipation [Unknown]
